FAERS Safety Report 4323171-4 (Version None)
Quarter: 2004Q1

REPORT INFORMATION
  Report Type: 
  Country: None (occurrence: None)
  Receive Date: 20040324
  Receipt Date: 20040324
  Transmission Date: 20041129
  Serious: Yes (Hospitalization)
  Sender: FDA-Public Use
  Company Number: None

PATIENT
  Sex: Female
  Weight: 84 kg

DRUGS (2)
  1. ARSENIC TRISERIOX [Suspect]
     Indication: METASTATIC MALIGNANT MELANOMA
     Dosage: 21 MG QD X 5 DAYS IV
     Route: 042
     Dates: start: 20040315, end: 20040315
  2. ASCORBIC ACID [Suspect]
     Indication: METASTATIC MALIGNANT MELANOMA
     Dosage: 1000 MG QD X 5 DAYS IV
     Route: 042
     Dates: start: 20040315, end: 20040318

REACTIONS (6)
  - DIFFICULTY IN WALKING [None]
  - DISEASE PROGRESSION [None]
  - DYSPNOEA [None]
  - METASTASIS [None]
  - NERVOUS SYSTEM DISORDER [None]
  - PULMONARY VASCULAR DISORDER [None]
